FAERS Safety Report 4598118-6 (Version None)
Quarter: 2005Q1

REPORT INFORMATION
  Report Type: 
  Country: None (occurrence: None)
  Receive Date: 20050301
  Receipt Date: 20050301
  Transmission Date: 20050727
  Serious: Yes (Other)
  Sender: FDA-Public Use
  Company Number: None

PATIENT
  Age: 59 Year
  Sex: Male

DRUGS (3)
  1. OMEPRAZOLE [Suspect]
     Indication: PROPHYLAXIS
     Dosage: 1 CAPSULE BY MOUTH DAILY
     Dates: start: 20040101
  2. OMEPRAZOLE [Suspect]
     Indication: STOMACH DISCOMFORT
     Dosage: 1 CAPSULE BY MOUTH DAILY
     Dates: start: 20040101
  3. METFORMIN HCL [Concomitant]

REACTIONS (2)
  - DRUG INEFFECTIVE [None]
  - STOMACH DISCOMFORT [None]
